FAERS Safety Report 4295815-7 (Version None)
Quarter: 2004Q1

REPORT INFORMATION
  Report Type: 
  Country: None (occurrence: None)
  Receive Date: 20040216
  Receipt Date: 20031112
  Transmission Date: 20041129
  Serious: No
  Sender: FDA-Public Use
  Company Number: US-GLAXOSMITHKLINE-A0439408A

PATIENT
  Age: 63 Year
  Sex: Male

DRUGS (7)
  1. LAMICTAL [Suspect]
     Indication: EPILEPSY
     Dosage: 25MG PER DAY
     Route: 048
     Dates: start: 20031109
  2. SEROQUEL [Concomitant]
  3. LITHIUM CARBONATE [Concomitant]
  4. ZONEGRAN [Concomitant]
  5. PRINIVIL [Concomitant]
  6. PLAVIX [Concomitant]
  7. ATENOLOL [Concomitant]

REACTIONS (1)
  - INSOMNIA [None]
